FAERS Safety Report 11804043 (Version 2)
Quarter: 2015Q4

REPORT INFORMATION
  Report Type: Spontaneous
  Country: CN (occurrence: CN)
  Receive Date: 20151204
  Receipt Date: 20151222
  Transmission Date: 20160305
  Serious: Yes (Death)
  Sender: FDA-Public Use
  Company Number: CN-CTI_01835_2015

PATIENT
  Age: 1 Day
  Sex: Male

DRUGS (4)
  1. CUROSURF [Suspect]
     Active Substance: PORACTANT ALFA
     Dosage: ONCE
     Route: 007
     Dates: start: 20151029, end: 20151029
  2. NASAL CONTINUOUS POSITIVE AIRWAY PRESSURE [Concomitant]
     Dosage: DF
     Route: 045
     Dates: start: 20151029, end: 20151029
  3. NITRIC OXIDE. [Concomitant]
     Active Substance: NITRIC OXIDE
     Dosage: DF
     Dates: start: 20151030, end: 20151101
  4. CUROSURF [Suspect]
     Active Substance: PORACTANT ALFA
     Indication: NEONATAL RESPIRATORY DISTRESS SYNDROME
     Route: 007
     Dates: start: 20151030, end: 20151030

REACTIONS (4)
  - Heart rate decreased [None]
  - Neonatal respiratory distress syndrome [Fatal]
  - Condition aggravated [Fatal]
  - Blood pressure decreased [None]

NARRATIVE: CASE EVENT DATE: 20151030
